FAERS Safety Report 5139013-3 (Version None)
Quarter: 2006Q4

REPORT INFORMATION
  Report Type: 
  Country: None (occurrence: None)
  Receive Date: 20061030
  Receipt Date: 20060605
  Transmission Date: 20070319
  Serious: No
  Sender: FDA-Public Use
  Company Number: US-GLAXOSMITHKLINE-A0607925A

PATIENT
  Age: 64 Year
  Sex: Female

DRUGS (9)
  1. ADVAIR HFA [Suspect]
     Indication: DRUG USE FOR UNKNOWN INDICATION
     Dosage: 1PUFF TWICE PER DAY
     Route: 055
     Dates: start: 20060604, end: 20060605
  2. PREMARIN [Concomitant]
  3. DUONEB [Concomitant]
  4. PREDNISONE TAB [Concomitant]
  5. AMBIEN [Concomitant]
  6. ALBUTEROL [Concomitant]
  7. VERAPAMIL [Concomitant]
  8. SYNTHROID [Concomitant]
  9. SEREVENT [Concomitant]

REACTIONS (2)
  - NASOPHARYNGEAL DISORDER [None]
  - PHARMACEUTICAL PRODUCT COMPLAINT [None]
